FAERS Safety Report 23480793 (Version 1)
Quarter: 2024Q1

REPORT INFORMATION
  Report Type: Spontaneous
  Country: BR (occurrence: BR)
  Receive Date: 20240205
  Receipt Date: 20240205
  Transmission Date: 20240409
  Serious: No
  Sender: FDA-Public Use
  Company Number: BR-ALKEM LABORATORIES LIMITED-BR-ALKEM-2023-14594

PATIENT
  Age: 6 Year
  Sex: Male

DRUGS (1)
  1. MESALAMINE [Suspect]
     Active Substance: MESALAMINE
     Indication: Alopecia areata
     Dosage: 30 MILLIGRAM/KILOGRAM, QD
     Route: 065

REACTIONS (1)
  - Therapy partial responder [Unknown]
